FAERS Safety Report 8910887 (Version 1)
Quarter: 2012Q4

REPORT INFORMATION
  Report Type: Spontaneous
  Country: TR (occurrence: None)
  Receive Date: 20121113
  Receipt Date: 20121113
  Transmission Date: 20130627
  Serious: Yes (Hospitalization)
  Sender: FDA-Public Use
  Company Number: 1481786

PATIENT
  Age: 60 Year
  Sex: Female

DRUGS (3)
  1. VINCRISTINE [Suspect]
     Indication: MULTIPLE MYELOMA
     Dosage: not reported, unknown
  2. DOXORUBICIN [Suspect]
     Indication: MULTIPLE MYELOMA
     Dosage: not reported, unknown
  3. DEXAMETHASONE [Concomitant]

REACTIONS (4)
  - Atrioventricular block complete [None]
  - Angina pectoris [None]
  - Acute myocardial infarction [None]
  - Acute coronary syndrome [None]
